FAERS Safety Report 13663700 (Version 1)
Quarter: 2017Q2

REPORT INFORMATION
  Report Type: Spontaneous
  Country: US (occurrence: US)
  Receive Date: 20170616
  Receipt Date: 20170616
  Transmission Date: 20170830
  Serious: Yes (Other)
  Sender: FDA-Public Use
  Company Number: None

PATIENT
  Age: 82 Year
  Sex: Male

DRUGS (1)
  1. IBRANCE [Suspect]
     Active Substance: PALBOCICLIB
     Indication: BREAST CANCER
     Dosage: 100MG DAILY FOR 21 DAYS, 7 DAYS OFF ORAL
     Route: 048
     Dates: start: 20160916

REACTIONS (13)
  - Dry skin [None]
  - Fatigue [None]
  - Neuropathy peripheral [None]
  - Decreased appetite [None]
  - Weight decreased [None]
  - Hyperkeratosis [None]
  - Onychoclasis [None]
  - Pruritus [None]
  - Urticaria [None]
  - Alopecia [None]
  - Muscle spasms [None]
  - Amnesia [None]
  - Aura [None]
